FAERS Safety Report 18303786 (Version 2)
Quarter: 2023Q1

REPORT INFORMATION
  Report Type: Spontaneous
  Country: DE (occurrence: DE)
  Receive Date: 20200923
  Receipt Date: 20230119
  Transmission Date: 20230418
  Serious: Yes (Hospitalization)
  Sender: FDA-Public Use
  Company Number: DE-NOVARTISPH-NVSC2020DE252604

PATIENT
  Age: 85 Year
  Sex: Female
  Weight: 75.6 kg

DRUGS (8)
  1. METOPROLOL [Suspect]
     Active Substance: METOPROLOL
     Indication: Product used for unknown indication
     Dosage: 47.5 MG, BID, (1-0-1-0, TABLETTEN)
     Route: 048
  2. METAMIZOLE [Suspect]
     Active Substance: METAMIZOLE
     Indication: Product used for unknown indication
     Dosage: 500 MG, (BEI BEDARF, TABLETTEN)
     Route: 048
  3. TORSEMIDE [Suspect]
     Active Substance: TORSEMIDE
     Indication: Product used for unknown indication
     Dosage: 5 MG, QD, (0-1-0-0, TABLETTEN)
     Route: 048
  4. FEBUXOSTAT [Suspect]
     Active Substance: FEBUXOSTAT
     Indication: Product used for unknown indication
     Dosage: 80 MG, QD, (0-0-0-1, TABLETTEN)
     Route: 048
  5. ASPIRIN [Concomitant]
     Active Substance: ASPIRIN
     Indication: Product used for unknown indication
     Dosage: 100 MG, QD, (0-1-0-0, TABLETTEN)
     Route: 048
  6. VITAMIN D [Concomitant]
     Active Substance: VITAMIN D NOS
     Indication: Product used for unknown indication
     Dosage: 2000 IE, (0-1-0-0, KAPSELN)
     Route: 048
  7. WOBENZYM [Concomitant]
     Indication: Product used for unknown indication
     Dosage: UNK MG, TID, (2-2-2-0)
     Route: 048
  8. SELENASE [Concomitant]
     Indication: Product used for unknown indication
     Dosage: 300 MG, QD, (1-0-0-0, TABLETTEN)
     Route: 048

REACTIONS (2)
  - Fall [Unknown]
  - Syncope [Unknown]
